FAERS Safety Report 9935210 (Version 1)
Quarter: 2014Q1

REPORT INFORMATION
  Report Type: Spontaneous
  Country: US (occurrence: US)
  Receive Date: 20140228
  Receipt Date: 20140228
  Transmission Date: 20141002
  Serious: Yes (Life-Threatening)
  Sender: FDA-Public Use
  Company Number: US-009507513-1402USA012467

PATIENT
  Age: 58 Year
  Sex: Female

DRUGS (5)
  1. HEXADROL INJECTION [Suspect]
     Indication: ANGIOEDEMA
     Route: 042
  2. PEPCID [Suspect]
     Indication: ANGIOEDEMA
     Route: 048
  3. DIPHENHYDRAMINE HYDROCHLORIDE [Suspect]
     Indication: ANGIOEDEMA
  4. EPINEPHRINE [Suspect]
     Indication: ANGIOEDEMA
     Route: 058
  5. PRINIVIL [Concomitant]
     Indication: HYPERTENSION
     Dosage: DAILY FOR THE PAST 20 YEARS
     Route: 048

REACTIONS (2)
  - General physical health deterioration [Recovered/Resolved]
  - Drug ineffective [Unknown]
